FAERS Safety Report 8134157-6 (Version None)
Quarter: 2012Q1

REPORT INFORMATION
  Report Type: 
  Country: None (occurrence: None)
  Receive Date: 20120213
  Receipt Date: 20120213
  Transmission Date: 20120608
  Serious: Yes (Hospitalization)
  Sender: FDA-Public Use
  Company Number: None

PATIENT
  Age: 62 Year
  Sex: Male
  Weight: 97.0698 kg

DRUGS (1)
  1. ATRIPLA [Suspect]
     Indication: HIV INFECTION
     Dosage: ATRIPLA ONCE DAILY BY MOUTH
     Route: 048
     Dates: start: 20110401

REACTIONS (2)
  - DYSPNOEA [None]
  - RESPIRATORY DISORDER [None]
